FAERS Safety Report 6111732 (Version 2)
Quarter: 2012Q4

REPORT INFORMATION
  Report Type: 
  Country: GB (occurrence: GB)
  Receive Date: 20060821
  Receipt Date: 20121206
  Transmission Date: 20130627
  Serious: Yes (Other)
  Sender: FDA-Public Use
  Company Number: GB-JNJFOC-20060803701

PATIENT
  Age: 71 Year
  Sex: Male

DRUGS (9)
  1. IBUPROFEN [Suspect]
     Indication: BACK PAIN
     Route: 048
     Dates: end: 20060310
  2. AMITRIPTYLINE [Concomitant]
  3. ASPIRIN [Concomitant]
  4. ATORVASTATIN [Concomitant]
     Route: 048
  5. DILTIAZEM [Concomitant]
  6. FUROSEMIDE [Concomitant]
  7. GLYCERYL TRINITRATE [Concomitant]
  8. ISOSORBIDE MONONITRATE [Concomitant]
  9. PERINDOPRIL [Concomitant]

REACTIONS (1)
  - Angina pectoris [Unknown]
